FAERS Safety Report 19350055 (Version 1)
Quarter: 2021Q2

REPORT INFORMATION
  Report Type: Report from Study
  Country: GB (occurrence: GB)
  Receive Date: 20210531
  Receipt Date: 20210531
  Transmission Date: 20210717
  Serious: Yes (Hospitalization)
  Sender: FDA-Public Use
  Company Number: GB-ASPEN-GLO2021GB004149

PATIENT

DRUGS (4)
  1. DEXAMETHASONE. [Suspect]
     Active Substance: DEXAMETHASONE
     Indication: PLASMA CELL MYELOMA
     Dosage: 20 MG, 1 DOSE WEEKLY
     Route: 048
     Dates: start: 20201022, end: 20201118
  2. REVLIMID [Suspect]
     Active Substance: LENALIDOMIDE
     Dosage: 7.5 MG, QD
     Route: 048
     Dates: start: 20200924, end: 20201015
  3. REVLIMID [Suspect]
     Active Substance: LENALIDOMIDE
     Indication: PLASMA CELL MYELOMA
     Dosage: 7.5 MG, QD
     Route: 048
     Dates: start: 20201022, end: 20201112
  4. REVLIMID [Suspect]
     Active Substance: LENALIDOMIDE
     Dosage: 7.5 MG, QD
     Route: 048
     Dates: start: 20210128, end: 20210217

REACTIONS (2)
  - Fatigue [Recovered/Resolved]
  - Back pain [Recovered/Resolved]

NARRATIVE: CASE EVENT DATE: 20201112
